FAERS Safety Report 21163230 (Version 2)
Quarter: 2022Q3

REPORT INFORMATION
  Report Type: Spontaneous
  Country: US (occurrence: US)
  Receive Date: 20220802
  Receipt Date: 20220809
  Transmission Date: 20221027
  Serious: Yes (Other)
  Sender: FDA-Public Use
  Company Number: US-JNJFOC-20220753937

PATIENT
  Age: 49 Year
  Sex: Female

DRUGS (3)
  1. ELMIRON [Suspect]
     Active Substance: PENTOSAN POLYSULFATE SODIUM
     Indication: Cystitis interstitial
     Route: 048
     Dates: start: 20000101, end: 20201231
  2. THYROID [Concomitant]
     Active Substance: LEVOTHYROXINE\LIOTHYRONINE
     Indication: Hypothyroidism
     Dates: start: 19640101
  3. ESTROGENS [Concomitant]
     Active Substance: ESTROGENS
     Indication: Hysterectomy
     Dates: start: 19910101, end: 20150101

REACTIONS (4)
  - Macular degeneration [Unknown]
  - Retinal detachment [Recovered/Resolved]
  - Vitreous disorder [Unknown]
  - Off label use [Unknown]

NARRATIVE: CASE EVENT DATE: 20000101
